FAERS Safety Report 7459581-6 (Version None)
Quarter: 2011Q2

REPORT INFORMATION
  Report Type: 
  Country: None (occurrence: None)
  Receive Date: 20110505
  Receipt Date: 20110503
  Transmission Date: 20111010
  Serious: Yes (Other)
  Sender: FDA-Public Use
  Company Number: US-PFIZER INC-2011095356

PATIENT
  Sex: Female
  Weight: 68.027 kg

DRUGS (2)
  1. GEODON [Suspect]
     Indication: BIPOLAR I DISORDER
  2. GEODON [Suspect]
     Indication: MENTAL DISORDER
     Dosage: 60 MG, DAILY
     Route: 048
     Dates: end: 20110501

REACTIONS (6)
  - FALL [None]
  - DIZZINESS [None]
  - WITHDRAWAL SYNDROME [None]
  - ABDOMINAL PAIN UPPER [None]
  - LOSS OF CONSCIOUSNESS [None]
  - DYSSTASIA [None]
